FAERS Safety Report 6636883-4 (Version None)
Quarter: 2010Q1

REPORT INFORMATION
  Report Type: 
  Country: None (occurrence: None)
  Receive Date: 20100316
  Receipt Date: 20100302
  Transmission Date: 20100710
  Serious: Yes (Other)
  Sender: FDA-Public Use
  Company Number: PHEH2009US07765

PATIENT
  Sex: Female

DRUGS (1)
  1. ZELNORM [Suspect]

REACTIONS (20)
  - ARTHRALGIA [None]
  - ASTHENIA [None]
  - ATELECTASIS [None]
  - CONSTIPATION [None]
  - DEPRESSED MOOD [None]
  - DYSPNOEA [None]
  - ECONOMIC PROBLEM [None]
  - EMOTIONAL DISTRESS [None]
  - INJURY [None]
  - JOINT INJURY [None]
  - LUMBAR SPINAL STENOSIS [None]
  - MENISCUS LESION [None]
  - MICTURITION DISORDER [None]
  - NON-CARDIAC CHEST PAIN [None]
  - PNEUMONIA [None]
  - RADICULOPATHY [None]
  - SPONDYLOLYSIS [None]
  - STENT PLACEMENT [None]
  - SUICIDAL IDEATION [None]
  - VOMITING [None]
